FAERS Safety Report 9425893 (Version 1)
Quarter: 2013Q3

REPORT INFORMATION
  Report Type: Spontaneous
  Country: US (occurrence: US)
  Receive Date: 20130729
  Receipt Date: 20130729
  Transmission Date: 20140515
  Serious: Yes (Death, Other)
  Sender: FDA-Public Use
  Company Number: US-TMC-CABO-13002890

PATIENT
  Age: 42 Year
  Sex: Male

DRUGS (1)
  1. COMETRIQ [Suspect]
     Indication: LUNG NEOPLASM MALIGNANT
     Dosage: 140 MG, QD
     Route: 048
     Dates: start: 20130501, end: 20130527

REACTIONS (2)
  - Hepatic failure [Fatal]
  - Liver function test abnormal [Unknown]
